FAERS Safety Report 23265527 (Version 1)
Quarter: 2023Q4

REPORT INFORMATION
  Report Type: Spontaneous
  Country: US (occurrence: US)
  Receive Date: 20231206
  Receipt Date: 20231206
  Transmission Date: 20240110
  Serious: No
  Sender: FDA-Public Use
  Company Number: US-STRIDES ARCOLAB LIMITED-2023SP014891

PATIENT
  Age: 32 Year
  Sex: Male

DRUGS (20)
  1. DIAZEPAM [Suspect]
     Active Substance: DIAZEPAM
     Indication: Drug withdrawal syndrome
     Dosage: 5 MILLIGRAM
     Route: 042
  2. DIAZEPAM [Suspect]
     Active Substance: DIAZEPAM
     Dosage: 100 TO 150 MG OF DIAZEPAM DAILY
     Route: 065
  3. DIAZEPAM [Suspect]
     Active Substance: DIAZEPAM
     Dosage: 20 MILLIGRAM, QID
     Route: 048
  4. DIAZEPAM [Suspect]
     Active Substance: DIAZEPAM
     Dosage: 20 MILLIGRAM, EVERY 6 HRS
     Route: 048
  5. DIAZEPAM [Suspect]
     Active Substance: DIAZEPAM
     Dosage: 40 MILLIGRAM, BID
     Route: 065
  6. DIAZEPAM [Suspect]
     Active Substance: DIAZEPAM
     Dosage: UNK, TAPERED
     Route: 065
  7. GABAPENTIN [Suspect]
     Active Substance: GABAPENTIN
     Indication: Drug withdrawal syndrome
     Dosage: 300 MILLIGRAM, TID
     Route: 065
  8. NALOXONE [Concomitant]
     Active Substance: NALOXONE
     Indication: Product used for unknown indication
     Dosage: 8 MILLIGRAM
     Route: 065
  9. ETIZOLAM [Concomitant]
     Active Substance: ETIZOLAM
     Indication: Product used for unknown indication
     Dosage: UNK, DAILY (FOR THE PAST 1.5 YEARS) (CONCENTRATION OF THE BOTTLE WAS LABELLED AS 10 MG/ML)
     Route: 065
  10. ETIZOLAM [Concomitant]
     Active Substance: ETIZOLAM
     Dosage: 1.5 ML  (15 MG)
     Route: 065
  11. ETIZOLAM [Concomitant]
     Active Substance: ETIZOLAM
     Dosage: 1 MG (CONSERVATIVE DOSE EQUIVALENCE OF 1 MG ETIZOLAM TO 5 MG DIAZEPAM)
     Route: 065
  12. ETIZOLAM [Concomitant]
     Active Substance: ETIZOLAM
     Dosage: 20 TO 30 MG OF ETIZOLAM IS EQUIVALENT TO 100 TO 150 MG OF DIAZEPAM DAILY
     Route: 065
  13. TIANEPTINE [Concomitant]
     Active Substance: TIANEPTINE
     Indication: Product used for unknown indication
     Dosage: UNK (LOW DOSES) DAILY
     Route: 065
  14. TIANEPTINE [Concomitant]
     Active Substance: TIANEPTINE
     Dosage: 50 MG (TO ACHIEVE OPIOID EFFECTS)
     Route: 065
  15. 4-AMINO-3-PHENYLBUTYRIC ACID [Concomitant]
     Active Substance: 4-AMINO-3-PHENYLBUTYRIC ACID
     Indication: Product used for unknown indication
     Dosage: UNK (OCCASIONAL SOCIAL USE)
     Route: 065
  16. METHADONE [Concomitant]
     Active Substance: METHADONE HYDROCHLORIDE
     Indication: Drug withdrawal syndrome
     Dosage: 5 MILLIGRAM, BID
     Route: 048
  17. METHADONE [Concomitant]
     Active Substance: METHADONE HYDROCHLORIDE
     Dosage: 5 MILLIGRAM, BID
     Route: 065
  18. METHADONE [Concomitant]
     Active Substance: METHADONE HYDROCHLORIDE
     Dosage: 5 MILLIGRAM PER DAY
     Route: 065
  19. BUPRENORPHINE [Concomitant]
     Active Substance: BUPRENORPHINE
     Indication: Drug withdrawal syndrome
     Dosage: UNK
     Route: 065
  20. CHLORDIAZEPOXIDE [Concomitant]
     Active Substance: CHLORDIAZEPOXIDE
     Indication: Drug withdrawal syndrome
     Dosage: 25 MILLIGRAM, EVERY 6 HRS
     Route: 065

REACTIONS (1)
  - Off label use [Unknown]
